FAERS Safety Report 24437339 (Version 1)
Quarter: 2024Q4

REPORT INFORMATION
  Report Type: Spontaneous
  Country: US (occurrence: None)
  Receive Date: 20241011
  Receipt Date: 20241011
  Transmission Date: 20250114
  Serious: Yes (unspecified)
  Sender: Public
  Company Number: None

PATIENT
  Age: 45 Year
  Sex: Female
  Weight: 81.9 kg

DRUGS (8)
  1. MOUNJARO [Suspect]
     Active Substance: TIRZEPATIDE
     Dosage: OTHER QUANTITY : 1 INJECTION(S);?OTHER FREQUENCY : 1 WEEKLY;?
     Route: 058
     Dates: start: 20241009, end: 20241009
  2. LISINOPRIL [Concomitant]
  3. METFORMIN [Concomitant]
  4. SPIRONOLACTONE [Concomitant]
  5. HEATHER [Concomitant]
     Active Substance: NORETHINDRONE
  6. Atorcastatin [Concomitant]
  7. mecilizine [Concomitant]
  8. Daily flintsone vitamin [Concomitant]

REACTIONS (3)
  - Hypersensitivity [None]
  - Urticaria [None]
  - Contusion [None]

NARRATIVE: CASE EVENT DATE: 20241009
